FAERS Safety Report 7998126-9 (Version None)
Quarter: 2011Q4

REPORT INFORMATION
  Report Type: 
  Country: None (occurrence: None)
  Receive Date: 20111221
  Receipt Date: 20110217
  Transmission Date: 20120403
  Serious: No
  Sender: FDA-Public Use
  Company Number: US-GLAXOSMITHKLINE-A0914174A

PATIENT
  Age: 64 Year
  Sex: Male

DRUGS (5)
  1. ROSUVASTATIN [Concomitant]
  2. NAPROXEN (ALEVE) [Concomitant]
  3. VITAMIN E [Concomitant]
  4. LOVAZA [Suspect]
     Indication: BLOOD CHOLESTEROL
     Dosage: 2CAP TWICE PER DAY
     Route: 048
     Dates: start: 20110124
  5. CLOPIDOGREL [Concomitant]

REACTIONS (1)
  - DYSGEUSIA [None]
